FAERS Safety Report 23158931 (Version 1)
Quarter: 2023Q4

REPORT INFORMATION
  Report Type: Other
  Country: DE (occurrence: DE)
  Receive Date: 20231108
  Receipt Date: 20231108
  Transmission Date: 20240110
  Serious: Yes (Hospitalization)
  Sender: FDA-Public Use
  Company Number: DE-BAXTER-2023BAX029888

PATIENT
  Age: 76 Year
  Sex: Male
  Weight: 78 kg

DRUGS (51)
  1. OXYCODONE [Suspect]
     Active Substance: OXYCODONE
     Indication: Product used for unknown indication
     Dosage: 5 MG, PRN (RET.) 5 MG (IF NEEDED: 1 PIECE IN CASE OF PAIN. PER INTAKE, MAX. EVERY 24 HOURS 3 PIECE)
     Route: 048
  2. FENTANYL [Suspect]
     Active Substance: FENTANYL\FENTANYL CITRATE
     Indication: Product used for unknown indication
     Dosage: 12.5 MICROGRAM (PER HOUR, PLEASE DISCONTINUE)
     Route: 065
     Dates: end: 20230814
  3. FENTANYL [Suspect]
     Active Substance: FENTANYL\FENTANYL CITRATE
     Dosage: 25 MICROGRAM (PER HOUR MATRIXPFL 5.78 MG/PF CHANGED EVERY 3 DAYS)
     Route: 065
  4. FENTANYL [Suspect]
     Active Substance: FENTANYL\FENTANYL CITRATE
     Dosage: 12 MICROGRAM (PER HOUR MATRIXPFL 2.89MG/PF) CHANGED IN EVERY 3 DAYS)
     Route: 065
  5. FENTANYL [Suspect]
     Active Substance: FENTANYL\FENTANYL CITRATE
     Dosage: UNK (OUTLET TRIAL WITH FENTANYL PATCH )
     Route: 065
  6. DEXPANTHENOL [Suspect]
     Active Substance: DEXPANTHENOL
     Indication: Product used for unknown indication
     Dosage: UNK UNK, QD (UNK (EYE AND NOSE OINTMENT) (STRENGTH: 0.05 G) SINGLE DOSE) EVENING
     Route: 065
  7. DEXPANTHENOL [Suspect]
     Active Substance: DEXPANTHENOL
     Dosage: UNK UNK, QD (NIGHT) (EYE OINTMENT)
     Route: 065
  8. AMINO ACIDS\DEXTROSE\ELECTROLYTES NOS\SOYBEAN OIL [Suspect]
     Active Substance: AMINO ACIDS\DEXTROSE\ELECTROLYTES NOS\SOYBEAN OIL
     Indication: Parenteral nutrition
     Dosage: UNK
     Route: 065
  9. MOVICOL [Suspect]
     Active Substance: POLYETHYLENE GLYCOL 3350\POTASSIUM CHLORIDE\SODIUM BICARBONATE\SODIUM CHLORIDE
     Indication: Product used for unknown indication
     Dosage: UNK ((BAG) (1 BAG IN THE MORNING
     Route: 065
  10. PANCRELIPASE [Suspect]
     Active Substance: PANCRELIPASE
     Indication: Product used for unknown indication
     Dosage: UNK ((PANCREAS POWDER FROM PIG) (25000) PIECE ONCE IN THE MORNING, ONCE IN THE NOON, ONCE IN THE EVE
     Route: 065
  11. PANCRELIPASE [Suspect]
     Active Substance: PANCRELIPASE
     Dosage: UNK ((PANCREAS POWDER FROM PIG) (25000) PIECE ONCE IN THE MORNING, ONCE IN THE NOON AND ONCE IN THE
     Route: 065
  12. PANCRELIPASE [Suspect]
     Active Substance: PANCRELIPASE
     Dosage: 25000 IU INTERNATIONAL UNIT(S) ( ONCE IN THE MORNING, ONCE IN THE AFTERNOON AND ONCE IN THE NIGHT 1-
     Route: 065
  13. ROBINUL [Suspect]
     Active Substance: GLYCOPYRROLATE
     Indication: Product used for unknown indication
     Dosage: UNK ((INJECTION 0.2 MG/ML SOLUTION FOR INJECTION) (DOSAGE FORM: SOLUTION))
     Route: 065
  14. TAVOR (LORAZEPAM) [Suspect]
     Active Substance: LORAZEPAM
     Indication: Product used for unknown indication
     Dosage: UNK ((DOSAGE FORM: MELTING TABLETS)
     Route: 065
  15. CALCIUM CHLORIDE\DEXTROSE\POTASSIUM CHLORIDE\SODIUM CHLORIDE [Suspect]
     Active Substance: CALCIUM CHLORIDE\DEXTROSE\POTASSIUM CHLORIDE\SODIUM CHLORIDE
     Indication: Parenteral nutrition
     Dosage: 1000 MILLILITER, QD (1000 ML ONCE IN THE MORNING DAILY RUN OVER 4-5 H )
     Route: 042
  16. BISOPROLOL [Suspect]
     Active Substance: BISOPROLOL\BISOPROLOL FUMARATE
     Indication: Product used for unknown indication
     Dosage: UNK (1.25 MG PIECE ONCE IN THE EVENING)
     Route: 048
  17. SODIUM CITRATE\SODIUM LAURYL SULFOACETATE [Suspect]
     Active Substance: SODIUM CITRATE\SODIUM LAURYL SULFOACETATE
     Indication: Product used for unknown indication
     Dosage: UNK(RECTAL SOLUTION ENEMAS) (120.26)
     Route: 065
  18. METAMIZOLE [Suspect]
     Active Substance: METAMIZOLE
     Indication: Product used for unknown indication
     Dosage: UNK ((1 A PHARMA) EVERY 6 HOURS)
     Route: 065
  19. ABSTRAL [Suspect]
     Active Substance: FENTANYL CITRATE
     Indication: Breakthrough pain
     Dosage: 100 MCG (PIECE)
     Route: 065
  20. SODIUM PICOSULFATE [Suspect]
     Active Substance: SODIUM PICOSULFATE
     Indication: Laxative supportive care
     Dosage: UNK (FROM 3 DAY NO BOVEL MOVEMENT 18 DROPS (DOSAGE FORM: DROPS))
     Route: 065
  21. LEVOTHYROXINE SODIUM [Suspect]
     Active Substance: LEVOTHYROXINE SODIUM
     Indication: Product used for unknown indication
     Dosage: 50 MCG, QD ((50 HENNING) ONE PIECE IN THE MORNING)
     Route: 048
  22. DEXTROSE [Suspect]
     Active Substance: DEXTROSE\DEXTROSE MONOHYDRATE
     Indication: Parenteral nutrition
     Dosage: UNK UNK, QD (AT AN UNSPECIFIED DOSE ONCE IN THE MORNING AS SHORT INFUSION)
     Route: 042
  23. ESOMEPRAZOLE [Suspect]
     Active Substance: ESOMEPRAZOLE
     Indication: Product used for unknown indication
     Dosage: 40 MG, QD (PIECE ONCE IN THE AFTERNOON
     Route: 065
  24. ASPIRIN [Suspect]
     Active Substance: ASPIRIN
     Indication: Product used for unknown indication
     Dosage: 100 MG, BID (100 MG (1X1), PIECE ONCE IN THE MORNING AND ONCE IN THE NIGHT)
     Route: 048
  25. FRESUBIN [Suspect]
     Active Substance: AMINO ACIDS\DEXTROSE\ELECTROLYTES NOS\SOYBEAN OIL\VITAMINS
     Indication: Product used for unknown indication
     Dosage: UNK UNK, BID ((ENERGY DRINK MIXED CARTON DRINKING BOTTLE)
     Route: 065
  26. MORPHINE [Suspect]
     Active Substance: MORPHINE
     Indication: Product used for unknown indication
     Dosage: UNK (HAMELN 10 MG INJECTION SOLUTION)
     Route: 065
  27. ELECTROLYTES NOS\MINERALS [Suspect]
     Active Substance: ELECTROLYTES NOS\MINERALS
     Indication: Parenteral nutrition
     Dosage: UNK UNK, QD (MANUFACTURER: LABORATOIRE AGUETTANT S.A.S.) AT AN UNSPECIFIED DOSE ONCE IN THE MORNING
     Route: 042
  28. ACTRAPID [Suspect]
     Active Substance: INSULIN HUMAN
     Indication: Product used for unknown indication
     Dosage: UNK (INSULIN) (ACCORDING TO PLAN)
     Route: 058
  29. METFORMIN [Suspect]
     Active Substance: METFORMIN HYDROCHLORIDE
     Indication: Product used for unknown indication
     Dosage: 1000 MG, BID ((1 A PHARMA) PIECE ONE IN THE MORNING AND ONE IN THE NIGHT)
     Route: 048
  30. PROMETHAZINE [Suspect]
     Active Substance: PROMETHAZINE HYDROCHLORIDE
     Indication: Product used for unknown indication
     Dosage: 10 DROP, HS
     Route: 065
  31. FERRO-SANOL DUODENAL [Suspect]
     Active Substance: FERROUS GLYCINE SULFATE
     Indication: Product used for unknown indication
     Dosage: 100 MG (1 X 1)
     Route: 048
  32. AMINO ACIDS\DEXTROSE\ELECTROLYTES NOS\SOYBEAN OIL [Suspect]
     Active Substance: AMINO ACIDS\DEXTROSE\ELECTROLYTES NOS\SOYBEAN OIL
     Indication: Parenteral nutrition
     Dosage: UNK (2200 KCAL FOR 24 H (MON-FRI) (PERIOPERATIVELY))
     Route: 042
  33. VITAMIN D3 [Suspect]
     Active Substance: CHOLECALCIFEROL
     Indication: Product used for unknown indication
     Dosage: UNK (DROP ONCE IN THE MORNING, ONCE IN THE NOON AND ONCE IN THE NIGHT (BREAK))
     Route: 065
  34. VITAMIN D3 [Suspect]
     Active Substance: CHOLECALCIFEROL
     Dosage: UNK (1 X 4 DAILY (DOSAGE FORM: DROP))
     Route: 065
  35. VITAMIN D3 [Suspect]
     Active Substance: CHOLECALCIFEROL
     Indication: Product used for unknown indication
     Dosage: 4 DROP, QD (4 DROPS DAILY (= 4.000 INTERNATIONAL UNITS) (DOSGE FORM: LIQUID)
     Route: 065
  36. CERNEVIT [Suspect]
     Active Substance: VITAMINS
     Indication: Parenteral nutrition
     Dosage: UNK, QD (AT AN UNSPECIFIED DOSE ONCE IN THE MORNING AS SHORT INFUSION)
     Route: 065
  37. ENOXAPARIN SODIUM [Suspect]
     Active Substance: ENOXAPARIN SODIUM
     Indication: Product used for unknown indication
     Dosage: 0.4 MG, BID (ONCE IN THE MORNING AND ONCE IN THE NIGHT, DISCONTINUE IF SUFFICIENT MOBILIZATION)
     Route: 065
  38. MAGNESIUM [Suspect]
     Active Substance: MAGNESIUM
     Indication: Product used for unknown indication
     Dosage: UNK ((300) PIECE ONCE IN THE NOON (BREAK))
     Route: 065
  39. MAGNESIUM [Suspect]
     Active Substance: MAGNESIUM
     Dosage: 300 MG, QD (NIGHT)
     Route: 048
  40. VITAMIN B COMPLEX [Suspect]
     Active Substance: CYANOCOBALAMIN\DEXPANTHENOL\NIACINAMIDE\PYRIDOXINE HYDROCHLORIDE\RIBOFLAVIN 5^-PHOSPHATE SODIUM\THIA
     Indication: Product used for unknown indication
     Dosage: UNK, QD (PIECE ONCE IN THE MORNING (BREAK) )
     Route: 048
  41. PREDNISONE [Concomitant]
     Active Substance: PREDNISONE
     Indication: Product used for unknown indication
     Dosage: UNK (5 MG Z. N)
     Route: 065
  42. PREDNISONE [Concomitant]
     Active Substance: PREDNISONE
     Dosage: UNK ((2 MG M ALTERED. ACTIVE INGREDIENT RELEASE) (NOTES: 1 X1 TABLET 10 PM) (FORM: RETTABL)
     Route: 065
  43. PANTOPRAZOLE [Concomitant]
     Active Substance: PANTOPRAZOLE
     Indication: Product used for unknown indication
     Dosage: 40 MG, BID (1-0-1)
     Route: 065
  44. METHOTREXATE [Concomitant]
     Active Substance: METHOTREXATE
     Indication: Product used for unknown indication
     Dosage: 15 MG, QW (AS PEN) (CURRENTLY PAUSED SINCE 09-JUL-2021)
     Route: 058
  45. FOLIC ACID [Concomitant]
     Active Substance: FOLIC ACID
     Indication: Product used for unknown indication
     Dosage: 10 MG, QW  (24 HOURS AFTER MTX INTAKE) (CURRENTLY PAUSED)
     Route: 065
  46. SULFASALAZINE [Concomitant]
     Active Substance: SULFASALAZINE
     Indication: Product used for unknown indication
     Dosage: UNK
     Route: 065
  47. PREDNISOLONE [Concomitant]
     Active Substance: PREDNISOLONE
     Indication: Product used for unknown indication
     Dosage: UNK (IN AUG-2021 RECURRENCE AND INITIAL START OF PREDNISOLONE MONOTHERAPY (IN SEP-2021 THERAPY EXTEN
     Route: 065
  48. PREDNISOLONE [Concomitant]
     Active Substance: PREDNISOLONE
     Dosage: 5 MG ((GALEN) PIECE ONCE IN THE NIGHT)
     Route: 065
  49. PREDNISOLONE [Concomitant]
     Active Substance: PREDNISOLONE
     Dosage: 5 MG, QD (MORNING)
     Route: 065
  50. PREDNISOLONE [Concomitant]
     Active Substance: PREDNISOLONE
     Dosage: UNK (DUE TO THE ONGOING REMISSION REDUCED THE PREDNISOLONE FROM 10 MG/DAY TO 5 MG/DAY, THIS DOSAGE W
     Route: 065
     Dates: start: 20230201
  51. PREDNISOLONE [Concomitant]
     Active Substance: PREDNISOLONE
     Dosage: 10 MG, QD
     Route: 065

REACTIONS (10)
  - General physical health deterioration [Unknown]
  - Blood pressure decreased [Unknown]
  - Abscess [Recovering/Resolving]
  - Diarrhoea [Unknown]
  - Drug intolerance [Unknown]
  - Dehiscence [Unknown]
  - Body temperature increased [Unknown]
  - Tachycardia [Unknown]
  - Chills [Unknown]
  - Drug hypersensitivity [Unknown]
